FAERS Safety Report 24723919 (Version 1)
Quarter: 2024Q4

REPORT INFORMATION
  Report Type: Spontaneous
  Country: US (occurrence: US)
  Receive Date: 20241211
  Receipt Date: 20241211
  Transmission Date: 20250115
  Serious: No
  Sender: MERCK
  Company Number: US-009507513-2411USA008708

PATIENT
  Age: 55 Year
  Sex: Male

DRUGS (1)
  1. KEYTRUDA [Suspect]
     Active Substance: PEMBROLIZUMAB

REACTIONS (5)
  - Feeling abnormal [Recovered/Resolved]
  - Localised infection [Recovered/Resolved]
  - Impaired healing [Recovered/Resolved]
  - Skin disorder [Recovered/Resolved]
  - Exposure via body fluid [Unknown]

NARRATIVE: CASE EVENT DATE: 20241011
